FAERS Safety Report 9969947 (Version 1)
Quarter: 2014Q1

REPORT INFORMATION
  Report Type: Spontaneous
  Country: US (occurrence: None)
  Receive Date: 20140127
  Receipt Date: 20140127
  Transmission Date: 20141002
  Serious: Yes (Death, Other)
  Sender: FDA-Public Use
  Company Number: 1194503

PATIENT
  Age: 89 Year
  Sex: Female
  Weight: 57.1 kg

DRUGS (2)
  1. ACTIVASE [Suspect]
     Indication: CEREBROVASCULAR ACCIDENT
     Dosage: 951 MG), INTRAVENOUS (NOT OTHERWISE SPECIFIED)?
     Route: 042
     Dates: start: 20121207, end: 20121207
  2. LABETALOL (LABETALOL HYDROCHLORIDE) [Concomitant]

REACTIONS (1)
  - Haemorrhage intracranial [None]
